FAERS Safety Report 13672715 (Version 1)
Quarter: 2017Q2

REPORT INFORMATION
  Report Type: Spontaneous
  Country: IN (occurrence: IN)
  Receive Date: 20170621
  Receipt Date: 20170621
  Transmission Date: 20170830
  Serious: Yes (Other)
  Sender: FDA-Public Use
  Company Number: IN-BAXTER-2017BAX024598

PATIENT
  Age: 30 Year
  Sex: Female
  Weight: 70 kg

DRUGS (16)
  1. ISOFLURANE USP (AERRANE) 100ML, 250ML GLASS BOTTLES - INHALATION ANAES [Suspect]
     Active Substance: ISOFLURANE
     Indication: MAINTENANCE OF ANAESTHESIA
     Route: 055
  2. MAGNESIUM SULPHATE [Suspect]
     Active Substance: MAGNESIUM SULFATE
     Indication: CONVULSION PROPHYLAXIS
     Route: 042
  3. LABETALOL [Suspect]
     Active Substance: LABETALOL\LABETALOL HYDROCHLORIDE
     Indication: BLOOD PRESSURE MANAGEMENT
     Dosage: 5 MG/MIN
     Route: 042
  4. DEXMEDETOMIDINE. [Suspect]
     Active Substance: DEXMEDETOMIDINE
     Indication: HAEMODYNAMIC INSTABILITY
  5. ALPHA-METHYL-DOPA [Suspect]
     Active Substance: METHYLDOPA
     Indication: GESTATIONAL HYPERTENSION
     Route: 065
  6. SYNTOCINON [Suspect]
     Active Substance: OXYTOCIN
     Indication: HAEMODYNAMIC INSTABILITY
  7. SYNTOCINON [Suspect]
     Active Substance: OXYTOCIN
     Indication: UTERINE ATONY
  8. PROSTODIN [Suspect]
     Active Substance: CARBOPROST TROMETHAMINE
     Indication: PRODUCT USED FOR UNKNOWN INDICATION
     Route: 065
  9. LIGNOCAINE HYDROCHLORIDE [Suspect]
     Active Substance: LIDOCAINE HYDROCHLORIDE
     Indication: BLOOD PRESSURE MANAGEMENT
     Route: 042
  10. DEXMEDETOMIDINE. [Suspect]
     Active Substance: DEXMEDETOMIDINE
     Indication: UTERINE ATONY
     Dosage: 35MCG/HOUR,
     Route: 042
  11. DEXMEDETOMIDINE. [Suspect]
     Active Substance: DEXMEDETOMIDINE
     Indication: PROPHYLAXIS
  12. DEXMEDETOMIDINE. [Suspect]
     Active Substance: DEXMEDETOMIDINE
     Indication: POSTOPERATIVE ANALGESIA
  13. SYNTOCINON [Suspect]
     Active Substance: OXYTOCIN
     Indication: HYPERTENSION
     Route: 042
  14. SYNTOCINON [Suspect]
     Active Substance: OXYTOCIN
     Indication: PROPHYLAXIS
  15. DEXMEDETOMIDINE. [Suspect]
     Active Substance: DEXMEDETOMIDINE
     Indication: HYPERTENSION
     Dosage: 70MCG/HOUR, OVER 10 MIN
     Route: 040
  16. SYNTOCINON [Suspect]
     Active Substance: OXYTOCIN
     Indication: POSTOPERATIVE ANALGESIA

REACTIONS (7)
  - Postpartum haemorrhage [Recovering/Resolving]
  - Oedema peripheral [None]
  - Maternal exposure during pregnancy [None]
  - Exposure during pregnancy [Recovered/Resolved]
  - Caesarean section [None]
  - Hypertension [None]
  - Heart rate increased [None]
